FAERS Safety Report 10247988 (Version 1)
Quarter: 2014Q2

REPORT INFORMATION
  Report Type: Spontaneous
  Country: FR (occurrence: FR)
  Receive Date: 20140619
  Receipt Date: 20140619
  Transmission Date: 20141212
  Serious: Yes (Other)
  Sender: FDA-Public Use
  Company Number: FR-BAXTER-2014BAX030326

PATIENT
  Age: 7 Month
  Sex: Female

DRUGS (3)
  1. KIOVIG, 100 MG/ML, SOLUTION POUR PERFUSION [Suspect]
     Indication: PRODUCT USED FOR UNKNOWN INDICATION
     Dosage: 2 G/KG
     Route: 042
  2. ASPIRIN [Suspect]
     Indication: PRODUCT USED FOR UNKNOWN INDICATION
     Route: 065
  3. AMOXICILLIN/CLAVULANIC ACID [Suspect]
     Indication: OTITIS MEDIA
     Route: 065

REACTIONS (1)
  - Gastrointestinal obstruction [Unknown]
